FAERS Safety Report 14033180 (Version 3)
Quarter: 2017Q4

REPORT INFORMATION
  Report Type: Spontaneous
  Country: US (occurrence: US)
  Receive Date: 20171003
  Receipt Date: 20171208
  Transmission Date: 20180321
  Serious: No
  Sender: FDA-Public Use
  Company Number: US-PFIZER INC-2017419367

PATIENT
  Age: 31 Year
  Sex: Female
  Weight: 58.97 kg

DRUGS (4)
  1. ADVIL [Suspect]
     Active Substance: IBUPROFEN
     Indication: HEADACHE
     Dosage: 3 LIQUIGELS
     Route: 048
     Dates: end: 20170926
  2. ADVIL [Suspect]
     Active Substance: IBUPROFEN
     Dosage: 600 MG, DAILY
     Route: 048
  3. IBUPROFEN. [Concomitant]
     Active Substance: IBUPROFEN
     Indication: HEADACHE
     Dosage: 3 DF, UNK
     Route: 048
  4. EXCEDRIN [Concomitant]
     Active Substance: ACETAMINOPHEN\ASPIRIN\CAFFEINE
     Indication: HEADACHE
     Dosage: 2 TABLETS, AS NEEDED
     Route: 048

REACTIONS (4)
  - Incorrect dose administered [Recovered/Resolved]
  - Poor quality drug administered [Recovered/Resolved]
  - Product odour abnormal [Recovered/Resolved]
  - Diarrhoea [Recovered/Resolved]

NARRATIVE: CASE EVENT DATE: 20170926
